FAERS Safety Report 10062643 (Version 1)
Quarter: 2014Q2

REPORT INFORMATION
  Report Type: Spontaneous
  Country: NL (occurrence: NL)
  Receive Date: 20140407
  Receipt Date: 20140407
  Transmission Date: 20141212
  Serious: Yes (Death, Congenital Anomaly)
  Sender: FDA-Public Use
  Company Number: CHPA2014NL004850

PATIENT
  Sex: 0

DRUGS (3)
  1. TAVEGYL [Suspect]
     Indication: HYPERSENSITIVITY
     Dosage: 1 MG, BID
     Route: 064
     Dates: start: 20140115, end: 20140220
  2. FEXOFENADINE [Suspect]
     Indication: HYPERSENSITIVITY
     Dosage: 120 MG, BID
     Route: 064
     Dates: start: 201310
  3. CETIRIZINE [Suspect]
     Indication: HYPERSENSITIVITY
     Dosage: 10 MG, BID
     Route: 064
     Dates: start: 20131209

REACTIONS (3)
  - Hypoplastic left heart syndrome [Fatal]
  - Abortion induced [Fatal]
  - Foetal death [Fatal]
